FAERS Safety Report 5784450-7 (Version None)
Quarter: 2008Q2

REPORT INFORMATION
  Report Type: 
  Country: None (occurrence: None)
  Receive Date: 20080605
  Receipt Date: 20080424
  Transmission Date: 20081010
  Serious: No
  Sender: FDA-Public Use
  Company Number: A0721321A

PATIENT
  Age: 20 Year
  Sex: Female

DRUGS (1)
  1. ALLI [Suspect]
     Dates: start: 20080401, end: 20080422

REACTIONS (3)
  - HAEMATOCHEZIA [None]
  - STEATORRHOEA [None]
  - THIRST [None]
